FAERS Safety Report 6545467-8 (Version None)
Quarter: 2010Q1

REPORT INFORMATION
  Report Type: 
  Country: None (occurrence: None)
  Receive Date: 20100121
  Receipt Date: 20100111
  Transmission Date: 20100710
  Serious: Yes (Other)
  Sender: FDA-Public Use
  Company Number: IN-JNJFOC-20100107657

PATIENT
  Age: 55 Year
  Sex: Female

DRUGS (5)
  1. RISPERIDONE [Suspect]
     Indication: SCHIZOPHRENIA
     Route: 065
  2. RIMONABANT [Interacting]
     Indication: OBESITY
     Route: 065
  3. RIMONABANT [Interacting]
     Route: 065
  4. AMISULPRIDE [Interacting]
     Indication: SCHIZOPHRENIA
     Route: 065
  5. TRIHEXYPHENIDYL HCL [Interacting]
     Indication: DRUG USE FOR UNKNOWN INDICATION
     Route: 065

REACTIONS (2)
  - CATATONIA [None]
  - DRUG INTERACTION [None]
